FAERS Safety Report 15661264 (Version 1)
Quarter: 2018Q4

REPORT INFORMATION
  Report Type: Spontaneous
  Country: US (occurrence: US)
  Receive Date: 20181127
  Receipt Date: 20181127
  Transmission Date: 20190205
  Serious: Yes (Other)
  Sender: FDA-Public Use
  Company Number: US-PFIZER INC-2018485338

PATIENT
  Age: 37 Year

DRUGS (1)
  1. SULFAMETHOXAZOLE/TRIMETHOPRIM [Suspect]
     Active Substance: SULFAMETHOXAZOLE\TRIMETHOPRIM
     Dosage: UNK, DS TABLET

REACTIONS (4)
  - Hypotension [Unknown]
  - Pyrexia [Unknown]
  - Shock [Unknown]
  - Acute kidney injury [Unknown]
